FAERS Safety Report 5876412-6 (Version None)
Quarter: 2008Q3

REPORT INFORMATION
  Report Type: 
  Country: None (occurrence: None)
  Receive Date: 20080908
  Receipt Date: 20080908
  Transmission Date: 20090109
  Serious: Yes (Hospitalization)
  Sender: FDA-Public Use
  Company Number: None

PATIENT
  Age: 78 Year
  Sex: Male

DRUGS (24)
  1. LISINOPRIL [Suspect]
     Indication: HYPERTENSION
     Dosage: 10 MG ONCE DAILY PO
     Route: 048
     Dates: start: 20080811, end: 20080813
  2. ACETAMINOPHEN [Concomitant]
  3. ALUM/MAGN HYDROXIDE + SIMETHICONE [Concomitant]
  4. ASCORBIC ACID [Concomitant]
  5. BACITRACIN [Concomitant]
  6. CEFTAZIDIME [Concomitant]
  7. CYCLOPHOSPHAMIDE [Concomitant]
  8. DIPHENHYDRAMINE HCL [Concomitant]
  9. DOCUSATE [Concomitant]
  10. DRONABINOL [Concomitant]
  11. ENALAPRIL MALEATE [Concomitant]
  12. ESOMEPRAZOLE [Concomitant]
  13. OMEPRAZOLE [Concomitant]
  14. FLUCONAZOLE [Concomitant]
  15. FUROSEMIDE [Concomitant]
  16. HEPARIN FLUSH [Concomitant]
  17. HYDRALAZINE HCL [Concomitant]
  18. IMMUNE GLOBIN [Concomitant]
  19. OCTAGAM [Concomitant]
  20. LEVOFLOXACIN [Concomitant]
  21. LISINOPRIL [Concomitant]
  22. LORAZEPAM [Concomitant]
  23. MAGNESIUM OXIDE [Concomitant]
  24. METOP [Concomitant]

REACTIONS (3)
  - HAEMOLYTIC ANAEMIA [None]
  - PANCREATITIS [None]
  - URINE ABNORMALITY [None]
